FAERS Safety Report 7651574-9 (Version None)
Quarter: 2011Q3

REPORT INFORMATION
  Report Type: 
  Country: None (occurrence: None)
  Receive Date: 20110802
  Receipt Date: 20110728
  Transmission Date: 20111222
  Serious: Yes (Hospitalization)
  Sender: FDA-Public Use
  Company Number: FR-ROCHE-793241

PATIENT
  Sex: Female
  Weight: 66 kg

DRUGS (3)
  1. ACUPAN [Suspect]
     Dosage: START DATE: 25 MAY 2011, DOSE: 4 AMP, FREQUENCY: DAILY
     Route: 065
  2. ACTEMRA [Suspect]
     Route: 042
     Dates: start: 20110105, end: 20110427
  3. ARAVA [Concomitant]
     Dosage: FREQUENCY: DAY
     Route: 048
     Dates: start: 20040101

REACTIONS (2)
  - VENOUS THROMBOSIS [None]
  - DYSPNOEA [None]
